FAERS Safety Report 10368511 (Version 2)
Quarter: 2014Q3

REPORT INFORMATION
  Report Type: Spontaneous
  Country: US (occurrence: US)
  Receive Date: 20140807
  Receipt Date: 20140807
  Transmission Date: 20150326
  Serious: Yes (Hospitalization)
  Sender: FDA-Public Use
  Company Number: US-GLAXOSMITHKLINE-A0877103A

PATIENT
  Sex: Female

DRUGS (1)
  1. AVANDIA [Suspect]
     Active Substance: ROSIGLITAZONE MALEATE
     Indication: DIABETES MELLITUS
     Dosage: 8MG PER DAY
     Route: 048
     Dates: start: 2004, end: 2010

REACTIONS (6)
  - Sick sinus syndrome [Unknown]
  - Cardiomyopathy [Unknown]
  - Atrioventricular block complete [Unknown]
  - Cardiac pacemaker insertion [Unknown]
  - Coronary artery disease [Unknown]
  - Cardiac failure congestive [Unknown]
